APPROVED DRUG PRODUCT: AMITRIPTYLINE HYDROCHLORIDE
Active Ingredient: AMITRIPTYLINE HYDROCHLORIDE
Strength: 100MG
Dosage Form/Route: TABLET;ORAL
Application: A040218 | Product #005
Applicant: PH HEALTH LTD
Approved: Sep 11, 1997 | RLD: No | RS: No | Type: DISCN